FAERS Safety Report 9248773 (Version 2)
Quarter: 2013Q2

REPORT INFORMATION
  Report Type: Spontaneous
  Country: US (occurrence: US)
  Receive Date: 20130423
  Receipt Date: 20130521
  Transmission Date: 20140414
  Serious: Yes (Hospitalization)
  Sender: FDA-Public Use
  Company Number: US-TEVA-399620USA

PATIENT
  Sex: Female

DRUGS (6)
  1. PROAIR HFA [Suspect]
     Indication: PRODUCT USED FOR UNKNOWN INDICATION
     Dosage: 2 PUFFS DAILY TO 4 TIMES DAILY AS NEEDED
  2. NIFEREX [Concomitant]
     Route: 048
  3. DUONEB [Concomitant]
     Dosage: AS NEEDED
     Route: 055
  4. PRAVASTATIN [Concomitant]
     Dosage: 40 MILLIGRAM DAILY;
     Route: 048
  5. FLOVENT [Concomitant]
     Dosage: 2 PUFFS TWICE DAILY
  6. OMEPRAZOLE [Concomitant]
     Dosage: 20 MILLIGRAM DAILY;
     Route: 048

REACTIONS (2)
  - Fall [Unknown]
  - Bronchitis [Unknown]
